FAERS Safety Report 12768488 (Version 1)
Quarter: 2016Q3

REPORT INFORMATION
  Report Type: Spontaneous
  Country: US (occurrence: US)
  Receive Date: 20160921
  Receipt Date: 20160921
  Transmission Date: 20161109
  Serious: No
  Sender: FDA-Public Use
  Company Number: US-BRAINTREE LABORATORIES-160053

PATIENT
  Age: 57 Year
  Sex: Female

DRUGS (1)
  1. SUPREP BOWEL PREP [Suspect]
     Active Substance: MAGNESIUM SULFATE\POTASSIUM SULFATE\SODIUM SULFATE
     Indication: COLONOSCOPY
     Dosage: 1 X 6 OZ. BOTTLE
     Route: 048
     Dates: start: 20160112, end: 20160112

REACTIONS (7)
  - Dysphonia [None]
  - Hypersensitivity [None]
  - Sneezing [None]
  - Lacrimation increased [None]
  - Nasal congestion [None]
  - Headache [None]
  - Pharyngeal oedema [None]

NARRATIVE: CASE EVENT DATE: 20160112
